FAERS Safety Report 23052075 (Version 1)
Quarter: 2023Q4

REPORT INFORMATION
  Report Type: Spontaneous
  Country: US (occurrence: US)
  Receive Date: 20231010
  Receipt Date: 20231010
  Transmission Date: 20240109
  Serious: No
  Sender: FDA-Public Use
  Company Number: US-Merck Healthcare KGaA-2023478423

PATIENT
  Sex: Female

DRUGS (1)
  1. BAVENCIO [Suspect]
     Active Substance: AVELUMAB
     Indication: Bladder cancer

REACTIONS (4)
  - Blood creatine increased [Unknown]
  - Hepatic enzyme increased [Unknown]
  - Disease progression [Unknown]
  - Illness [Unknown]
